FAERS Safety Report 16004322 (Version 10)
Quarter: 2022Q4

REPORT INFORMATION
  Report Type: Other
  Country: CA (occurrence: None)
  Receive Date: 20190226
  Receipt Date: 20221213
  Transmission Date: 20230113
  Serious: Yes (Other)
  Sender: FDA-Public Use
  Company Number: CA-ROCHE-2267315

PATIENT
  Age: 37 Year
  Sex: Male

DRUGS (4)
  1. OCREVUS [Suspect]
     Active Substance: OCRELIZUMAB
     Indication: Relapsing-remitting multiple sclerosis
     Dosage: 300 MG AT DAY 0 AND 14, THEN 600 MG EVERY 6 MONTH
     Route: 042
     Dates: start: 20180301
  2. LYRICA [Concomitant]
     Active Substance: PREGABALIN
  3. GABAPENTIN [Concomitant]
     Active Substance: GABAPENTIN
  4. DALFAMPRIDINE [Concomitant]
     Active Substance: DALFAMPRIDINE

REACTIONS (14)
  - Multiple sclerosis [Not Recovered/Not Resolved]
  - Urinary tract infection [Recovered/Resolved]
  - Visual impairment [Not Recovered/Not Resolved]
  - Dizziness [Not Recovered/Not Resolved]
  - Salivary hypersecretion [Not Recovered/Not Resolved]
  - Fall [Unknown]
  - Traumatic haemorrhage [Recovered/Resolved]
  - Skin laceration [Unknown]
  - Dizziness [Not Recovered/Not Resolved]
  - Constipation [Not Recovered/Not Resolved]
  - Gait disturbance [Recovered/Resolved]
  - Muscle spasticity [Not Recovered/Not Resolved]
  - Muscular weakness [Not Recovered/Not Resolved]
  - Urinary incontinence [Not Recovered/Not Resolved]

NARRATIVE: CASE EVENT DATE: 20190101
